FAERS Safety Report 6699191-1 (Version None)
Quarter: 2010Q2

REPORT INFORMATION
  Report Type: 
  Country: None (occurrence: None)
  Receive Date: 20100421
  Receipt Date: 20090914
  Transmission Date: 20101027
  Serious: Yes (Other)
  Sender: FDA-Public Use
  Company Number: 20090409

PATIENT
  Age: 76 Year
  Sex: Female
  Weight: 82.1011 kg

DRUGS (2)
  1. DEXFERRUM [Suspect]
     Dosage: 25 MG INTRAVENOUS
     Route: 042
     Dates: start: 20090905, end: 20090905
  2. BENADRYL [Concomitant]

REACTIONS (3)
  - BACK PAIN [None]
  - CHEST PAIN [None]
  - DYSPNOEA [None]
